FAERS Safety Report 10100383 (Version 3)
Quarter: 2014Q2

REPORT INFORMATION
  Report Type: Report from Study
  Country: AU (occurrence: AU)
  Receive Date: 20140423
  Receipt Date: 20140425
  Transmission Date: 20141212
  Serious: Yes (Other)
  Sender: FDA-Public Use
  Company Number: PHHY2014AU041956

PATIENT
  Age: 78 Year
  Sex: Female
  Weight: 60 kg

DRUGS (11)
  1. ACLASTA [Suspect]
     Indication: OSTEOPOROSIS
     Dosage: 5 MG/100ML
     Route: 042
     Dates: start: 20121005
  2. AMLO//AMLODIPINE BESILATE [Concomitant]
     Dosage: 1 DF, UNK
  3. AUGMENTIN DUO FORTE [Concomitant]
     Dosage: 1 DF, BID
  4. E-MYCIN [Concomitant]
     Dosage: 1 DF, BID
  5. FUNGILIN [Concomitant]
     Dosage: 1 DF, QID, PRN
  6. NEO B12 [Concomitant]
     Dosage: 1 DF, UNK
  7. OVESTIN [Concomitant]
     Dosage: 1 MG/G, 15 G, APPLY TWICE WEEKLY
  8. PANADOL OSTEO [Concomitant]
     Dosage: 2 DF, TID
  9. PLAVIX [Concomitant]
     Indication: CORONARY ARTERY DISEASE
     Dosage: 1 DF, UNK
     Route: 048
  10. TRUSOPT [Concomitant]
     Dosage: 20MG/ML, 5 ML,  BID
     Route: 065
  11. XALATAN [Concomitant]
     Dosage: 1 DF, 2.5 ML, LEFT SIDE
     Route: 065

REACTIONS (18)
  - Bronchiectasis [Not Recovered/Not Resolved]
  - Chronic obstructive pulmonary disease [Not Recovered/Not Resolved]
  - Glaucoma [Not Recovered/Not Resolved]
  - Myocardial ischaemia [Not Recovered/Not Resolved]
  - Hyperparathyroidism primary [Not Recovered/Not Resolved]
  - Blood parathyroid hormone increased [Unknown]
  - Blood calcium increased [Unknown]
  - Calcium ionised increased [Unknown]
  - Hypertension [Not Recovered/Not Resolved]
  - Osteoporosis [Not Recovered/Not Resolved]
  - Urinary tract infection [Not Recovered/Not Resolved]
  - Diverticulum [Not Recovered/Not Resolved]
  - Hypercholesterolaemia [Not Recovered/Not Resolved]
  - Large intestine polyp [Not Recovered/Not Resolved]
  - Vitamin B12 deficiency [Not Recovered/Not Resolved]
  - Blood pH decreased [Unknown]
  - Gastrooesophageal reflux disease [Not Recovered/Not Resolved]
  - Glomerular filtration rate decreased [Unknown]
